FAERS Safety Report 12787301 (Version 1)
Quarter: 2016Q3

REPORT INFORMATION
  Report Type: Spontaneous
  Country: US (occurrence: US)
  Receive Date: 20160927
  Receipt Date: 20160927
  Transmission Date: 20161109
  Serious: No
  Sender: FDA-Public Use
  Company Number: US-ORCHID HEALTHCARE-1057781

PATIENT
  Age: 63 Year
  Sex: Female

DRUGS (4)
  1. USNPECIFIED ANTIDEPRESSANT [Concomitant]
     Route: 065
  2. SUMATRIPTAN. [Suspect]
     Active Substance: SUMATRIPTAN
     Indication: MIGRAINE
     Route: 048
     Dates: start: 2014
  3. USNPECIFIED ANTIHYPERTENSIVE [Concomitant]
     Route: 065
  4. USNPECIFIED DYSLIPIDEMICS [Concomitant]
     Route: 065

REACTIONS (1)
  - Medication overuse headache [Recovered/Resolved]
